FAERS Safety Report 15682849 (Version 1)
Quarter: 2018Q4

REPORT INFORMATION
  Report Type: Spontaneous
  Country: GB (occurrence: GB)
  Receive Date: 20181203
  Receipt Date: 20181203
  Transmission Date: 20190205
  Serious: Yes (Hospitalization, Other)
  Sender: FDA-Public Use
  Company Number: GB-HETERO CORPORATE-HET2018GB01479

PATIENT
  Sex: Male

DRUGS (2)
  1. CLOPIXOL                           /00876702/ [Suspect]
     Active Substance: ZUCLOPENTHIXOL ACETATE
     Indication: SCHIZOPHRENIA
     Dosage: 600 MG
     Route: 065
  2. ARIPIPRAZOLE. [Suspect]
     Active Substance: ARIPIPRAZOLE
     Indication: PRODUCT USED FOR UNKNOWN INDICATION
     Dosage: 600 MG
     Route: 065

REACTIONS (18)
  - Diarrhoea [Unknown]
  - Hyperhidrosis [Unknown]
  - Headache [Unknown]
  - Abnormal behaviour [Unknown]
  - Tachypnoea [Unknown]
  - Dizziness [Unknown]
  - Loss of personal independence in daily activities [Unknown]
  - Encephalitis [Unknown]
  - Disorientation [Unknown]
  - Vitamin B12 decreased [Unknown]
  - Cognitive disorder [Recovering/Resolving]
  - Epigastric discomfort [Unknown]
  - Anal incontinence [Unknown]
  - Blood phosphorus decreased [Unknown]
  - Neuroleptic malignant syndrome [Recovered/Resolved]
  - Urine odour abnormal [Unknown]
  - Sinus tachycardia [Unknown]
  - Malaise [Unknown]
